FAERS Safety Report 19821914 (Version 1)
Quarter: 2021Q3

REPORT INFORMATION
  Report Type: Spontaneous
  Country: FI (occurrence: FI)
  Receive Date: 20210913
  Receipt Date: 20210913
  Transmission Date: 20211014
  Serious: Yes (Hospitalization)
  Sender: FDA-Public Use
  Company Number: FI-MYLANLABS-2021M1060874

PATIENT
  Age: 22 Year
  Sex: Male

DRUGS (4)
  1. ABSENOR                            /00228501/ [Concomitant]
     Indication: AFFECTIVE DISORDER
     Dosage: 1200 MILLIGRAM, QD
     Route: 048
     Dates: start: 20210111
  2. RISPERIDON KRKA [Concomitant]
     Active Substance: RISPERIDONE
     Indication: SCHIZOPHRENIA
     Dosage: 6 MILLIGRAM, QD
     Route: 048
     Dates: start: 20210225
  3. LEPONEX [Suspect]
     Active Substance: CLOZAPINE
     Indication: SCHIZOPHRENIA
     Dosage: 250 MILLIGRAM, QD
     Route: 048
     Dates: start: 20210311, end: 20210326
  4. PEGORION [Concomitant]
     Active Substance: POLYETHYLENE GLYCOL 4000
     Dosage: 12 GRAM, QD
     Route: 048

REACTIONS (2)
  - SARS-CoV-2 test negative [Not Recovered/Not Resolved]
  - Myocarditis [Not Recovered/Not Resolved]

NARRATIVE: CASE EVENT DATE: 20210324
